FAERS Safety Report 23526872 (Version 1)
Quarter: 2024Q1

REPORT INFORMATION
  Report Type: Report from Study
  Country: GB (occurrence: GB)
  Receive Date: 20240215
  Receipt Date: 20240215
  Transmission Date: 20240409
  Serious: Yes (Disabling, Other)
  Sender: FDA-Public Use
  Company Number: GB-002147023-NVSC2023GB270855

PATIENT
  Sex: Female

DRUGS (1)
  1. COSENTYX [Suspect]
     Active Substance: SECUKINUMAB
     Indication: Psoriatic arthropathy
     Dosage: 300 MG, 28D (EVERY 28 DAYS) (1 PRE-FILLED DISPOSABLE INJECTION)
     Route: 058

REACTIONS (6)
  - Cerebral haemorrhage [Unknown]
  - Gait disturbance [Unknown]
  - Hand deformity [Unknown]
  - Brain injury [Unknown]
  - Product storage error [Unknown]
  - Product dose omission issue [Unknown]
